FAERS Safety Report 4338804-6 (Version None)
Quarter: 2004Q2

REPORT INFORMATION
  Report Type: 
  Country: None (occurrence: None)
  Receive Date: 20040409
  Receipt Date: 20040402
  Transmission Date: 20050107
  Serious: Yes (Death)
  Sender: FDA-Public Use
  Company Number: JP-JNJFOC-20040400845

PATIENT
  Age: 52 Year
  Sex: Male

DRUGS (2)
  1. RISPERDAL [Suspect]
     Dosage: 2 MG, IN 1 DAY
  2. HALOPERIDOL DECANOATE [Suspect]

REACTIONS (1)
  - DEATH [None]
